FAERS Safety Report 6553497-5 (Version None)
Quarter: 2010Q1

REPORT INFORMATION
  Report Type: 
  Country: None (occurrence: None)
  Receive Date: 20100122
  Receipt Date: 20100106
  Transmission Date: 20100710
  Serious: Yes (Death)
  Sender: FDA-Public Use
  Company Number: 2009AC000004

PATIENT
  Age: 63 Year
  Sex: Male

DRUGS (12)
  1. DIGOXIN [Suspect]
     Dosage: .125 MG; PO
     Route: 048
     Dates: start: 20070601
  2. PLAVIX [Concomitant]
  3. FUROSEMIDE [Concomitant]
  4. PROTONIX [Concomitant]
  5. ALTACE [Concomitant]
  6. SPIRONOLACTONE [Concomitant]
  7. AMLODIPINE [Concomitant]
  8. CLONIDINE [Concomitant]
  9. PHOSLO [Concomitant]
  10. ADVAIR DISKUS 100/50 [Concomitant]
  11. AZITHROMYCIN [Concomitant]
  12. SPIRIVA [Concomitant]

REACTIONS (2)
  - ECONOMIC PROBLEM [None]
  - MULTIPLE INJURIES [None]
